FAERS Safety Report 14268072 (Version 2)
Quarter: 2017Q4

REPORT INFORMATION
  Report Type: Spontaneous
  Country: RU (occurrence: RU)
  Receive Date: 20171211
  Receipt Date: 20171225
  Transmission Date: 20180321
  Serious: Yes (Death, Other)
  Sender: FDA-Public Use
  Company Number: PHHY2017RU183172

PATIENT
  Sex: Male

DRUGS (2)
  1. PAZOPANIB [Concomitant]
     Active Substance: PAZOPANIB
     Indication: PRODUCT USED FOR UNKNOWN INDICATION
     Dosage: UNK
     Route: 065
     Dates: start: 201703
  2. EVEROLIMUS. [Suspect]
     Active Substance: EVEROLIMUS
     Indication: HEPATIC CANCER METASTATIC
     Dosage: 10 MG, UNK
     Route: 065
     Dates: start: 20171020

REACTIONS (2)
  - Malignant neoplasm progression [Fatal]
  - Hepatic cancer metastatic [Fatal]

NARRATIVE: CASE EVENT DATE: 201710
